FAERS Safety Report 8390212-7 (Version None)
Quarter: 2012Q2

REPORT INFORMATION
  Report Type: 
  Country: None (occurrence: None)
  Receive Date: 20120518
  Receipt Date: 20120507
  Transmission Date: 20120825
  Serious: Yes (Other)
  Sender: FDA-Public Use
  Company Number: 2012SP019275

PATIENT
  Age: 56 Year
  Sex: Male

DRUGS (2)
  1. PERINDOPRIL ERBUMINE [Suspect]
     Indication: PRODUCT USED FOR UNKNOWN INDICATION
  2. INTRON A [Suspect]
     Indication: MALIGNANT MELANOMA
     Dosage: SC
     Route: 058

REACTIONS (18)
  - OPTIC ISCHAEMIC NEUROPATHY [None]
  - COLLATERAL CIRCULATION [None]
  - OPTIC NERVE DISORDER [None]
  - OPTIC ATROPHY [None]
  - RETINOPATHY HYPERTENSIVE [None]
  - BLINDNESS [None]
  - MACULOPATHY [None]
  - INFLUENZA LIKE ILLNESS [None]
  - VISUAL FIELD DEFECT [None]
  - PAPILLOEDEMA [None]
  - RETINAL INJURY [None]
  - RETINAL VASCULAR DISORDER [None]
  - RETINAL HAEMORRHAGE [None]
  - PYREXIA [None]
  - LEUKOCYTOSIS [None]
  - LIVER FUNCTION TEST ABNORMAL [None]
  - RETINAL EXUDATES [None]
  - LACUNAR INFARCTION [None]
